FAERS Safety Report 21697143 (Version 3)
Quarter: 2022Q4

REPORT INFORMATION
  Report Type: Spontaneous
  Country: AT (occurrence: AT)
  Receive Date: 20221208
  Receipt Date: 20221229
  Transmission Date: 20230113
  Serious: Yes (Death, Life-Threatening, Hospitalization, Other)
  Sender: FDA-Public Use
  Company Number: AT-EXELIXIS-CABO-22056862

PATIENT
  Age: 7 Year
  Sex: Female
  Weight: 21 kg

DRUGS (4)
  1. CABOMETYX [Suspect]
     Active Substance: CABOZANTINIB S-MALATE
     Indication: Ewing^s sarcoma metastatic
     Dosage: 40 MG, QD
     Route: 048
     Dates: start: 20221025, end: 20221126
  2. ONDANSETRON [Concomitant]
     Active Substance: ONDANSETRON
     Indication: Vomiting
  3. CEPHALEXIN [Concomitant]
     Active Substance: CEPHALEXIN
     Indication: Infection
  4. POLYETHYLENE GLYCOLS [Concomitant]
     Active Substance: POLYETHYLENE GLYCOLS
     Indication: Constipation

REACTIONS (5)
  - Lung disorder [Fatal]
  - Pneumonia respiratory syncytial viral [Not Recovered/Not Resolved]
  - Pancreatitis [Recovering/Resolving]
  - Cardiac dysfunction [Unknown]
  - Off label use [Unknown]

NARRATIVE: CASE EVENT DATE: 20221128
